FAERS Safety Report 15922758 (Version 1)
Quarter: 2019Q1

REPORT INFORMATION
  Report Type: Spontaneous
  Country: ES (occurrence: ES)
  Receive Date: 20190206
  Receipt Date: 20190206
  Transmission Date: 20190417
  Serious: Yes (Hospitalization)
  Sender: FDA-Public Use
  Company Number: ES-TEVA-2019-ES-1008665

PATIENT
  Age: 91 Year
  Sex: Female

DRUGS (1)
  1. IRBESARTAN/HIDROCLORIATIZIDA TEVA 300MG/12,5 MG COMPRIMIDOS RECUBIERTO [Suspect]
     Active Substance: HYDROCHLOROTHIAZIDE\IRBESARTAN
     Indication: CARDIAC FAILURE
     Dosage: .5 DOSAGE FORMS DAILY; 1/2-0-0
     Route: 048
     Dates: start: 20150312, end: 20180124

REACTIONS (2)
  - Paresis [Recovered/Resolved]
  - Hypokalaemia [Recovered/Resolved]

NARRATIVE: CASE EVENT DATE: 20180124
